FAERS Safety Report 17830808 (Version 3)
Quarter: 2020Q2

REPORT INFORMATION
  Report Type: Spontaneous
  Country: US (occurrence: US)
  Receive Date: 20200527
  Receipt Date: 20200630
  Transmission Date: 20200714
  Serious: No
  Sender: FDA-Public Use
  Company Number: US-JNJFOC-20200519160

PATIENT
  Age: 58 Year
  Sex: Female

DRUGS (1)
  1. TREMFYA [Suspect]
     Active Substance: GUSELKUMAB
     Indication: ECZEMA
     Route: 058

REACTIONS (6)
  - Needle issue [Unknown]
  - Accidental exposure to product [Unknown]
  - Product use in unapproved indication [Unknown]
  - Off label use [Unknown]
  - Product leakage [Unknown]
  - Product dose omission [Unknown]

NARRATIVE: CASE EVENT DATE: 20200513
